FAERS Safety Report 7478812-X (Version None)
Quarter: 2011Q2

REPORT INFORMATION
  Report Type: 
  Country: None (occurrence: None)
  Receive Date: 20110513
  Receipt Date: 20110505
  Transmission Date: 20111010
  Serious: Yes (Death)
  Sender: FDA-Public Use
  Company Number: CO-ROCHE-775335

PATIENT
  Sex: Male

DRUGS (1)
  1. CELLCEPT [Suspect]
     Dosage: FREQUENCY: DAILY.
     Route: 048
     Dates: start: 20101122, end: 20110405

REACTIONS (1)
  - ACUTE MYOCARDIAL INFARCTION [None]
